FAERS Safety Report 9489813 (Version 6)
Quarter: 2015Q1

REPORT INFORMATION
  Report Type: Spontaneous
  Country: US (occurrence: US)
  Receive Date: 20130725
  Receipt Date: 20150226
  Transmission Date: 20150721
  Serious: Yes (Hospitalization, Other)
  Sender: FDA-Public Use
  Company Number: US-GLAXOSMITHKLINE-A1004244A

PATIENT
  Sex: Female
  Weight: 80.5 kg

DRUGS (1)
  1. AVANDIA [Suspect]
     Active Substance: ROSIGLITAZONE MALEATE
     Indication: DIABETES MELLITUS
     Dosage: UNK
     Route: 048
     Dates: start: 20010306, end: 200502

REACTIONS (7)
  - Pericardial effusion [Unknown]
  - Pleural effusion [Unknown]
  - Coronary artery disease [Unknown]
  - Angina pectoris [Unknown]
  - Cardiac failure [Unknown]
  - Ischaemia [Unknown]
  - Bundle branch block right [Unknown]
